FAERS Safety Report 14017843 (Version 1)
Quarter: 2017Q3

REPORT INFORMATION
  Report Type: Spontaneous
  Country: JP (occurrence: JP)
  Receive Date: 20170927
  Receipt Date: 20170927
  Transmission Date: 20171128
  Serious: Yes (Hospitalization, Other)
  Sender: FDA-Public Use
  Company Number: JP-MYLANLABS-2017M1059965

PATIENT
  Age: 75 Year
  Sex: Female

DRUGS (11)
  1. REMIFENTANIL [Concomitant]
     Active Substance: REMIFENTANIL
     Indication: INDUCTION OF ANAESTHESIA
     Dosage: 0.25 MICROGRAM/KG/MIN LOADING DOSE; FOLLOWED BY MAINTENANCE DOSE
     Route: 065
  2. ROCURONIUM BROMIDE. [Concomitant]
     Active Substance: ROCURONIUM BROMIDE
     Indication: INDUCTION OF ANAESTHESIA
     Dosage: 40MG
     Route: 065
  3. SEVOFLURANE. [Concomitant]
     Active Substance: SEVOFLURANE
     Indication: MAINTENANCE OF ANAESTHESIA
     Route: 065
  4. LEVOBUPIVACAINE [Suspect]
     Active Substance: LEVOBUPIVACAINE
     Indication: POSTOPERATIVE ANALGESIA
     Dosage: 0.2% INFUSION AS CONTINUOUS 4 ML/H INFUSION
     Route: 008
  5. FENTANYL. [Suspect]
     Active Substance: FENTANYL
     Indication: POSTOPERATIVE ANALGESIA
     Dosage: 2.5 MICROGRAM/ML INFUSION AS CONTINUOUS 4 ML/H INFUSION
     Route: 008
  6. FENTANYL. [Suspect]
     Active Substance: FENTANYL
     Indication: EPIDURAL ANAESTHESIA
     Dosage: 0.1 MG, CONTINUED AT 2.5 MICROGRAM/ML
     Route: 008
  7. PROPOFOL. [Concomitant]
     Active Substance: PROPOFOL
     Indication: INDUCTION OF ANAESTHESIA
     Dosage: 50MG
     Route: 065
  8. EPHEDRINE. [Concomitant]
     Active Substance: EPHEDRINE
     Indication: VASOCONSTRICTION
     Route: 065
  9. LEVOBUPIVACAINE [Suspect]
     Active Substance: LEVOBUPIVACAINE
     Indication: EPIDURAL ANAESTHESIA
     Dosage: 4 ML OF 0.25%, CONTINUED AT 0.2%
     Route: 008
  10. PHENYLEPHRINE [Concomitant]
     Active Substance: PHENYLEPHRINE\PHENYLEPHRINE HYDROCHLORIDE
     Indication: VASOCONSTRICTION
     Route: 065
  11. REMIFENTANIL [Concomitant]
     Active Substance: REMIFENTANIL
     Indication: MAINTENANCE OF ANAESTHESIA
     Route: 065

REACTIONS (2)
  - Paraplegia [Recovering/Resolving]
  - Spinal cord infarction [Recovering/Resolving]
